FAERS Safety Report 21977274 (Version 1)
Quarter: 2023Q1

REPORT INFORMATION
  Report Type: Spontaneous
  Country: SE (occurrence: SE)
  Receive Date: 20230210
  Receipt Date: 20230210
  Transmission Date: 20230417
  Serious: Yes (Hospitalization, Other)
  Sender: FDA-Public Use
  Company Number: None

PATIENT

DRUGS (10)
  1. DICLOFENAC [Suspect]
     Active Substance: DICLOFENAC
     Indication: Product used for unknown indication
     Dosage: UNK
  2. ARCOXIA [Suspect]
     Active Substance: ETORICOXIB
     Indication: Product used for unknown indication
     Dosage: UNK
  3. ORUDIS [Suspect]
     Active Substance: KETOPROFEN
     Indication: Product used for unknown indication
     Dosage: UNK
  4. AMLODIPINE BESYLATE [Concomitant]
     Active Substance: AMLODIPINE BESYLATE
     Indication: Product used for unknown indication
     Dosage: 10 MG, QD
  5. ALVEDON FORTE (PARACETAMOL) [Concomitant]
     Indication: Product used for unknown indication
     Dosage: 1 G, QID
  6. BETOLVEX [Concomitant]
     Indication: Product used for unknown indication
     Dosage: 1 MG, QD
  7. DOXAZOSIN [Concomitant]
     Active Substance: DOXAZOSIN MESYLATE
     Indication: Product used for unknown indication
     Dosage: 4 MG, QD
  8. HYDROCHLOROTHIAZIDE\LOSARTAN [Concomitant]
     Active Substance: HYDROCHLOROTHIAZIDE\LOSARTAN
     Indication: Product used for unknown indication
     Dosage: UNK, QD (1 X 1)
  9. METOPROLOL [Concomitant]
     Active Substance: METOPROLOL
     Indication: Product used for unknown indication
     Dosage: 50 MG, QD
  10. MIRTAZAPINE [Concomitant]
     Active Substance: MIRTAZAPINE
     Indication: Product used for unknown indication
     Dosage: 15 MG, QD

REACTIONS (1)
  - Duodenal ulcer [Unknown]

NARRATIVE: CASE EVENT DATE: 20220916
